FAERS Safety Report 7679943-1 (Version None)
Quarter: 2011Q3

REPORT INFORMATION
  Report Type: 
  Country: None (occurrence: None)
  Receive Date: 20110812
  Receipt Date: 20110802
  Transmission Date: 20111222
  Serious: Yes (Hospitalization)
  Sender: FDA-Public Use
  Company Number: JP-JNJFOC-20101000236

PATIENT
  Sex: Female
  Weight: 63 kg

DRUGS (26)
  1. REMICADE [Suspect]
     Indication: BEHCET'S SYNDROME
     Dosage: TOTAL OF 18 INFUSIONS
     Route: 042
     Dates: start: 20080522, end: 20100520
  2. AZUNOL [Concomitant]
     Indication: BEHCET'S SYNDROME
     Dates: start: 20080522
  3. KENALOG [Concomitant]
     Indication: BEHCET'S SYNDROME
     Dates: start: 20081119
  4. PYDOXAL [Concomitant]
     Indication: BEHCET'S SYNDROME
     Route: 048
     Dates: start: 20081127
  5. XALATAN [Concomitant]
     Indication: GLAUCOMA
  6. NEORAL [Concomitant]
     Indication: BEHCET'S SYNDROME
     Route: 048
     Dates: start: 20071122, end: 20080207
  7. ZYRTEC [Concomitant]
     Indication: SINUSITIS
     Route: 048
     Dates: start: 20081127
  8. RINDERON-VG [Concomitant]
     Indication: BEHCET'S SYNDROME
     Dates: start: 20090618
  9. PREDNISONE [Concomitant]
     Indication: PROPHYLAXIS
     Route: 042
     Dates: start: 20080828, end: 20100710
  10. TIMOPTOL [Concomitant]
     Indication: GLAUCOMA
     Dates: start: 20080101
  11. ATARAX [Concomitant]
     Indication: SINUSITIS
     Route: 048
     Dates: start: 20081127
  12. SELBEX [Concomitant]
     Indication: GASTRITIS
     Route: 048
  13. DASEN [Concomitant]
     Indication: SINUSITIS
     Route: 048
  14. COLCHICINE [Concomitant]
     Route: 048
     Dates: start: 20090227, end: 20100415
  15. DEXCHLORPHENIRAMINE MALEATE [Concomitant]
     Indication: PROPHYLAXIS
     Route: 048
     Dates: start: 20081127, end: 20100710
  16. COLCHICINE [Concomitant]
     Route: 048
     Dates: start: 20100416
  17. HYALEIN [Concomitant]
     Indication: KERATITIS
  18. CLONAZEPAM [Concomitant]
     Indication: KERATITIS
  19. NEORAL [Concomitant]
     Route: 048
     Dates: start: 20080208, end: 20080521
  20. BETAMETHASONE [Concomitant]
     Indication: BEHCET'S SYNDROME
     Dosage: VARIOUS DROPS TO EACH EYE
     Dates: start: 20071122, end: 20090507
  21. MYSER [Concomitant]
     Indication: BEHCET'S SYNDROME
     Dates: start: 20090618
  22. HIRUDOID CREAM [Concomitant]
     Indication: BEHCET'S SYNDROME
  23. ETODOLAC [Concomitant]
     Indication: BEHCET'S SYNDROME
     Route: 048
     Dates: start: 20080522
  24. RIBOFLAVIN TAB [Concomitant]
     Indication: BEHCET'S SYNDROME
     Route: 048
     Dates: start: 20081127
  25. COLCHICINE [Concomitant]
     Indication: BEHCET'S SYNDROME
     Route: 048
     Dates: start: 20090205, end: 20090226
  26. METHYCOBAL [Concomitant]
     Indication: KERATITIS

REACTIONS (5)
  - GASTROENTERITIS [None]
  - ANGIOPATHY [None]
  - CONVULSION [None]
  - INFUSION RELATED REACTION [None]
  - UPPER RESPIRATORY TRACT INFLAMMATION [None]
